FAERS Safety Report 22617309 (Version 5)
Quarter: 2024Q2

REPORT INFORMATION
  Report Type: Report from Study
  Country: US (occurrence: US)
  Receive Date: 20230620
  Receipt Date: 20240527
  Transmission Date: 20240717
  Serious: Yes (Hospitalization, Other)
  Sender: FDA-Public Use
  Company Number: US-ACADIA PHARMACEUTICALS INC.-ACA-2023-TRF-002086

PATIENT
  Age: 2 Year
  Sex: Female

DRUGS (14)
  1. DAYBUE [Suspect]
     Active Substance: TROFINETIDE
     Indication: Rett syndrome
     Dosage: 25 MILLILITER, BID G-TUBE
     Dates: start: 20230523, end: 2023
  2. DAYBUE [Suspect]
     Active Substance: TROFINETIDE
     Dosage: 20 MILLILITER, BID G-TUBE
     Dates: start: 20230531
  3. DAYBUE [Suspect]
     Active Substance: TROFINETIDE
     Dosage: INCREASE 1ML, BID EVERY WEEK VIA G-TUBE
     Dates: start: 20230622
  4. DAYBUE [Suspect]
     Active Substance: TROFINETIDE
     Dosage: 22 MILLILITER, BID VIA G-TUBE
     Dates: start: 20230705
  5. DAYBUE [Suspect]
     Active Substance: TROFINETIDE
     Dosage: 25 MILLILITER, BID VIA G-TUBE
  6. DAYBUE [Suspect]
     Active Substance: TROFINETIDE
     Dosage: 25 MILLILITER, BID VIA G-TUBE
  7. CLONIDINE [Concomitant]
     Active Substance: CLONIDINE
     Dosage: 0.02 MG/ML, TAKE 2 MLS (0.04 MG TOTAL) BID
     Route: 048
  8. LEVOTHYROXINE SODIUM [Concomitant]
     Active Substance: LEVOTHYROXINE SODIUM
     Dosage: 25 MCG, TAKE 0.5 TABLETS (12.5 MCG TOTAL) DAILY
     Route: 048
  9. LOPERAMIDE [Concomitant]
     Active Substance: LOPERAMIDE
     Indication: Diarrhoea
     Dosage: 1 MG/7.5 ML, TAKE 7.5 MLS (1 MG TOTAL) TID AS NEEDED
     Route: 048
  10. OMEPRAZOLE [Concomitant]
     Active Substance: DONEPEZIL HYDROCHLORIDE\OMEPRAZOLE\OMEPRAZOLE MAGNESIUM
     Dosage: 10 MILLIGRAM, BID
     Route: 048
  11. POLYETHYLENE GLYCOL 3350 [Concomitant]
     Active Substance: POLYETHYLENE GLYCOL 3350
     Dosage: 17 GRAM/DOSE, HALF CAP EVERY OTHER DAY
  12. SACCHAROMYCES CEREVISIAE [Concomitant]
     Active Substance: SACCHAROMYCES CEREVISIAE
     Dosage: 250 MILLIGRAM, BID
     Route: 048
  13. TRIAMCINOLONE [Concomitant]
     Active Substance: TRIAMCINOLONE
     Dosage: 0.5 %, APPLY TOPICALLY 4 (FOUR) TIMES A DAY FOR 14 DAYS
  14. XANTHAN GUM [Concomitant]
     Active Substance: XANTHAN GUM
     Route: 048

REACTIONS (10)
  - Pneumonia [Not Recovered/Not Resolved]
  - Pneumonia [Recovering/Resolving]
  - Rhinovirus infection [Recovering/Resolving]
  - Ear infection [Recovering/Resolving]
  - Metapneumovirus infection [Recovering/Resolving]
  - Gastroenteritis viral [Recovered/Resolved]
  - Product dose omission issue [Unknown]
  - Diarrhoea [Recovered/Resolved]
  - Decreased appetite [Not Recovered/Not Resolved]
  - Vomiting [Recovered/Resolved]

NARRATIVE: CASE EVENT DATE: 20230524
